FAERS Safety Report 7543522-7 (Version None)
Quarter: 2011Q2

REPORT INFORMATION
  Report Type: 
  Country: None (occurrence: None)
  Receive Date: 20110613
  Receipt Date: 20011114
  Transmission Date: 20111010
  Serious: Yes (Death)
  Sender: FDA-Public Use
  Company Number: PHBS2001JP10726

PATIENT
  Sex: Male
  Weight: 75 kg

DRUGS (4)
  1. LOCHOLEST [Suspect]
     Indication: HYPERCHOLESTEROLAEMIA
     Dosage: 20 MG/DAY
     Route: 048
     Dates: start: 20010127, end: 20010312
  2. ALLOPURINOL [Concomitant]
     Dates: start: 20010127, end: 20010312
  3. UROCALUN [Concomitant]
     Dates: start: 20010126, end: 20010312
  4. MUCOSTA [Concomitant]
     Dates: start: 20010126

REACTIONS (3)
  - METASTASIS [None]
  - METASTASES TO KIDNEY [None]
  - METASTASES TO LIVER [None]
